FAERS Safety Report 7273002-8 (Version None)
Quarter: 2011Q1

REPORT INFORMATION
  Report Type: 
  Country: None (occurrence: None)
  Receive Date: 20110203
  Receipt Date: 20110127
  Transmission Date: 20110831
  Serious: Yes (Death)
  Sender: FDA-Public Use
  Company Number: B0635325A

PATIENT
  Age: 79 Year
  Sex: Male

DRUGS (14)
  1. SELBEX [Concomitant]
     Route: 065
     Dates: start: 20090514, end: 20090528
  2. BIOFLOR [Concomitant]
     Route: 065
     Dates: start: 20080814
  3. PANTOLOC [Concomitant]
     Route: 065
     Dates: start: 20080814, end: 20081110
  4. MACPERAN [Concomitant]
     Route: 065
     Dates: start: 20090714
  5. HARNAL-D [Concomitant]
     Route: 065
     Dates: start: 20070824, end: 20071108
  6. ACETOMENAPHTHONE [Concomitant]
     Dates: start: 20090514
  7. VALIUM [Concomitant]
     Route: 065
     Dates: start: 20090514
  8. ULTRACET [Concomitant]
     Route: 065
     Dates: start: 20090602
  9. GASMOTIN [Concomitant]
     Route: 065
     Dates: start: 20090714
  10. COUGHING SYRUP [Concomitant]
     Dates: start: 20090714
  11. HYTRINE [Concomitant]
     Route: 065
     Dates: start: 20071109
  12. OPALMON [Concomitant]
     Dates: start: 20080814, end: 20081110
  13. AVODART [Suspect]
     Indication: BENIGN PROSTATIC HYPERPLASIA
     Dates: start: 20070824, end: 20090609
  14. ERDOS [Concomitant]
     Route: 065
     Dates: start: 20090514

REACTIONS (1)
  - LUNG NEOPLASM MALIGNANT [None]
